FAERS Safety Report 18986796 (Version 6)
Quarter: 2022Q1

REPORT INFORMATION
  Report Type: Report from Study
  Country: US (occurrence: US)
  Receive Date: 20210309
  Receipt Date: 20220106
  Transmission Date: 20220424
  Serious: No
  Sender: FDA-Public Use
  Company Number: US-KYOWAKIRIN-2021BKK003089

PATIENT

DRUGS (11)
  1. CRYSVITA [Suspect]
     Active Substance: BUROSUMAB-TWZA
     Indication: Hereditary hypophosphataemic rickets
     Dosage: 50 MG (COMBINED 20 MG AND 30 MG), 1X/2 WEEKS
     Route: 058
     Dates: start: 20180811, end: 20210205
  2. CRYSVITA [Suspect]
     Active Substance: BUROSUMAB-TWZA
     Dosage: 50 MG (COMBINED 20 MG AND 30 MG), ONCE EVERY 14 DAYS
     Route: 058
     Dates: start: 2021
  3. CRYSVITA [Suspect]
     Active Substance: BUROSUMAB-TWZA
     Dosage: 50 MG (COMBINED 20 MG AND 30 MG), 1X/2 WEEKS
     Route: 058
     Dates: start: 20210225, end: 2021
  4. CRYSVITA [Suspect]
     Active Substance: BUROSUMAB-TWZA
     Dosage: 20 MG, EVERY 14 DAYS
     Route: 058
     Dates: start: 2021, end: 2021
  5. CRYSVITA [Suspect]
     Active Substance: BUROSUMAB-TWZA
     Dosage: 50 MG (COMBINED 20 MG AND 30 MG), EVERY 14 DAYS
     Route: 058
     Dates: start: 2021, end: 2021
  6. CRYSVITA [Suspect]
     Active Substance: BUROSUMAB-TWZA
     Dosage: 50 MG (COMBINED DOSE OF 20 MG AND 30 MG), ONCE EVERY 14 DAYS
     Route: 058
     Dates: start: 2021, end: 2021
  7. CRYSVITA [Suspect]
     Active Substance: BUROSUMAB-TWZA
     Indication: Hereditary hypophosphataemic rickets
     Dosage: 50 MG (COMBINED 20 MG AND 30 MG), 1X/2 WEEKS
     Route: 058
     Dates: start: 20180811, end: 20210205
  8. CRYSVITA [Suspect]
     Active Substance: BUROSUMAB-TWZA
     Dosage: 50 MG (COMBINED 20 MG AND 30 MG), ONCE EVERY 14 DAYS
     Route: 058
     Dates: start: 2021
  9. CRYSVITA [Suspect]
     Active Substance: BUROSUMAB-TWZA
     Dosage: 50 MG (COMBINED 20 MG AND 30 MG), 1X/2 WEEKS
     Route: 058
     Dates: start: 20210225, end: 2021
  10. CRYSVITA [Suspect]
     Active Substance: BUROSUMAB-TWZA
     Dosage: 50 MG (COMBINED DOSE 20 MG AND 30 MG), ONCE EVERY 14 DAYS
     Route: 058
     Dates: start: 2021, end: 2021
  11. CRYSVITA [Suspect]
     Active Substance: BUROSUMAB-TWZA
     Dosage: 50 MG (COMBINED 20 MG AND 30 MG), ONCE EVERY 14 DAYS
     Route: 058
     Dates: start: 2021, end: 2021

REACTIONS (2)
  - Inappropriate schedule of product administration [Recovered/Resolved]
  - Off label use [Not Recovered/Not Resolved]

NARRATIVE: CASE EVENT DATE: 20210216
